FAERS Safety Report 8544729-2 (Version None)
Quarter: 2012Q3

REPORT INFORMATION
  Report Type: 
  Country: None (occurrence: None)
  Receive Date: 20120727
  Receipt Date: 20120720
  Transmission Date: 20120928
  Serious: Yes (Hospitalization)
  Sender: FDA-Public Use
  Company Number: FR-ROCHE-1074221

PATIENT
  Age: 74 Year
  Sex: Male

DRUGS (5)
  1. XELODA [Suspect]
     Indication: PRODUCT USED FOR UNKNOWN INDICATION
     Route: 048
     Dates: start: 20110707, end: 20110809
  2. SOTALOL HCL [Concomitant]
     Route: 048
     Dates: start: 20110505
  3. PREDNISONE TAB [Concomitant]
     Route: 048
  4. CISPLATIN [Suspect]
     Indication: PRODUCT USED FOR UNKNOWN INDICATION
     Route: 042
     Dates: start: 20110314, end: 20110902
  5. DURAGESIC-100 [Concomitant]
     Route: 062

REACTIONS (2)
  - OESOPHAGEAL ULCER [None]
  - RADIATION MUCOSITIS [None]
